FAERS Safety Report 5817082-2 (Version None)
Quarter: 2008Q3

REPORT INFORMATION
  Report Type: 
  Country: None (occurrence: None)
  Receive Date: 20080722
  Receipt Date: 20080715
  Transmission Date: 20090109
  Serious: Yes (Other)
  Sender: FDA-Public Use
  Company Number: US-BAYER-200818791NA

PATIENT
  Age: 26 Year
  Sex: Female
  Weight: 115 kg

DRUGS (3)
  1. YASMIN [Suspect]
     Indication: OVARIAN CYST
     Route: 048
     Dates: start: 20080302, end: 20080330
  2. HYDROCHLOROTHIAZIDE [Concomitant]
     Indication: HYPERTENSION
  3. BENAZEPRIL HYDROCHLORIDE [Concomitant]
     Indication: HYPERTENSION

REACTIONS (5)
  - AGITATION [None]
  - BLINDNESS UNILATERAL [None]
  - DIPLOPIA [None]
  - EYE DISORDER [None]
  - EYE PAIN [None]
